FAERS Safety Report 8169404-8 (Version None)
Quarter: 2012Q1

REPORT INFORMATION
  Report Type: 
  Country: None (occurrence: None)
  Receive Date: 20120228
  Receipt Date: 20120220
  Transmission Date: 20120608
  Serious: Yes (Other)
  Sender: FDA-Public Use
  Company Number: US-BAYER-2012-017062

PATIENT
  Age: 23 Year
  Sex: Female

DRUGS (1)
  1. MIRENA [Suspect]
     Indication: CONTRACEPTION
     Dosage: 20 MCG/24HR, CONT
     Route: 015
     Dates: start: 20120112, end: 20120217

REACTIONS (5)
  - PROCEDURAL PAIN [None]
  - PREGNANCY WITH CONTRACEPTIVE DEVICE [None]
  - DEVICE RELATED INFECTION [None]
  - DEVICE DISLOCATION [None]
  - DEVICE EXPULSION [None]
